FAERS Safety Report 23930416 (Version 1)
Quarter: 2024Q2

REPORT INFORMATION
  Report Type: Report from Study
  Country: BR (occurrence: BR)
  Receive Date: 20240602
  Receipt Date: 20240602
  Transmission Date: 20240716
  Serious: Yes (Other)
  Sender: FDA-Public Use
  Company Number: BR-ABBVIE-5780796

PATIENT
  Sex: Male
  Weight: 61 kg

DRUGS (1)
  1. SKYRIZI [Suspect]
     Active Substance: RISANKIZUMAB-RZAA
     Indication: Psoriasis
     Dosage: FORM STRENGTH: 75 MILLIGRAM?STOP DATE TEXT: MORE THAN 2 YEARS AGO
     Route: 058
     Dates: start: 20201211

REACTIONS (5)
  - Myocardial infarction [Unknown]
  - Memory impairment [Unknown]
  - Cholelithiasis [Unknown]
  - Pancreatitis [Unknown]
  - Feeling abnormal [Unknown]
